FAERS Safety Report 16942632 (Version 2)
Quarter: 2019Q4

REPORT INFORMATION
  Report Type: Report from Study
  Country: US (occurrence: US)
  Receive Date: 20191021
  Receipt Date: 20191122
  Transmission Date: 20200122
  Serious: Yes (Hospitalization)
  Sender: FDA-Public Use
  Company Number: US-ACTELION-A-NJ2019-196828

PATIENT
  Sex: Male

DRUGS (3)
  1. OPSUMIT [Suspect]
     Active Substance: MACITENTAN
     Indication: PULMONARY ARTERIAL HYPERTENSION
     Dosage: UNK
     Route: 048
     Dates: start: 20190919
  2. DILTIAZEM. [Concomitant]
     Active Substance: DILTIAZEM
  3. OPSUMIT [Suspect]
     Active Substance: MACITENTAN
     Dosage: 10 MG
     Route: 048

REACTIONS (9)
  - Hypotension [Unknown]
  - Fluid retention [Unknown]
  - Fall [Unknown]
  - Blood pressure orthostatic decreased [Unknown]
  - Product dose omission [Unknown]
  - Cognitive disorder [Unknown]
  - Weight increased [Unknown]
  - Subdural haematoma [Unknown]
  - Anaemia [Unknown]

NARRATIVE: CASE EVENT DATE: 2019
